FAERS Safety Report 8997630 (Version 2)
Quarter: 2013Q1

REPORT INFORMATION
  Report Type: Spontaneous
  Country: US (occurrence: US)
  Receive Date: 20130104
  Receipt Date: 20130123
  Transmission Date: 20140127
  Serious: No
  Sender: FDA-Public Use
  Company Number: US-009507513-1301USA001577

PATIENT
  Age: 58 Year
  Sex: Female

DRUGS (7)
  1. CLARITIN REDITABS 12HR [Suspect]
     Indication: HOUSE DUST ALLERGY
     Dosage: UNK UNK, PRN
     Route: 048
     Dates: start: 2010, end: 201301
  2. CLARITIN REDITABS 12HR [Suspect]
     Indication: MYCOTIC ALLERGY
  3. CLARITIN REDITABS 12HR [Suspect]
     Indication: MEDICAL OBSERVATION
  4. ASMANEX [Concomitant]
     Indication: ASTHMA
     Dosage: UNK, UNKNOWN
  5. LISINOPRIL [Concomitant]
     Indication: HYPERTENSION
     Dosage: UNK, UNKNOWN
  6. NASACORT AQ [Concomitant]
     Indication: HYPERSENSITIVITY
     Dosage: UNK, UNKNOWN
  7. ZANTAC [Concomitant]
     Indication: GASTROOESOPHAGEAL REFLUX DISEASE
     Dosage: UNK, UNKNOWN

REACTIONS (3)
  - Blood pressure increased [Recovered/Resolved]
  - Heart rate increased [Recovered/Resolved]
  - Somnolence [Recovered/Resolved]
